FAERS Safety Report 7290223-9 (Version None)
Quarter: 2011Q1

REPORT INFORMATION
  Report Type: 
  Country: None (occurrence: None)
  Receive Date: 20110214
  Receipt Date: 20110208
  Transmission Date: 20110831
  Serious: Yes (Other)
  Sender: FDA-Public Use
  Company Number: PHHY2011MX06853

PATIENT
  Sex: Female

DRUGS (6)
  1. ISOSORBIDE DINITRATE [Concomitant]
  2. NIFEDIPINE [Concomitant]
  3. DIOVAN [Suspect]
     Dosage: 320 MG, ONE TABLET DAILY
     Dates: start: 20070901
  4. CO-DIOVAN [Suspect]
     Indication: HYPERTENSION
     Dosage: 160/12.5 MG, ONE TABLET  DAILY
     Route: 048
     Dates: start: 20060101
  5. GLYCERYL TRINITRATE [Concomitant]
  6. LOGIMAX [Suspect]
     Dosage: UNK
     Dates: start: 20070901

REACTIONS (4)
  - DEPRESSION [None]
  - BLOOD PRESSURE INCREASED [None]
  - MYOCARDIAL INFARCTION [None]
  - ANXIETY [None]
